FAERS Safety Report 8665634 (Version 3)
Quarter: 2012Q4

REPORT INFORMATION
  Report Type: 
  Country: US (occurrence: US)
  Receive Date: 20120716
  Receipt Date: 20120831
  Transmission Date: 20130627
  Serious: Yes (Other)
  Sender: FDA-Public Use
  Company Number: US-BAYER-2012-069212

PATIENT
  Age: 34 Year
  Sex: Female
  Weight: 68.48 kg

DRUGS (1)
  1. MIRENA [Suspect]
     Dosage: 20 mcg/24hr, CONT
     Dates: start: 20111007

REACTIONS (1)
  - Ectopic pregnancy with intrauterine device [None]
